FAERS Safety Report 7786883-6 (Version None)
Quarter: 2011Q3

REPORT INFORMATION
  Report Type: 
  Country: None (occurrence: None)
  Receive Date: 20110929
  Receipt Date: 20110926
  Transmission Date: 20111222
  Serious: Yes (Life-Threatening, Hospitalization, Other)
  Sender: FDA-Public Use
  Company Number: JP-PFIZER INC-2011216077

PATIENT
  Age: 82 Year
  Sex: Female

DRUGS (11)
  1. CELECOXIB [Concomitant]
     Dosage: 200 MG DAILY
     Route: 048
  2. ZOLPIDEM [Concomitant]
     Dosage: 10 MG DAILY
     Route: 048
  3. LYRICA [Suspect]
     Dosage: 75 MG DAILY
     Route: 048
     Dates: start: 20110907, end: 20110901
  4. ARICEPT [Concomitant]
     Dosage: 5 MG DAILY
     Route: 048
  5. ASPIRIN [Concomitant]
     Dosage: 100 MG DAILY
     Route: 048
  6. TRICHLORMETHIAZIDE [Concomitant]
     Dosage: 1 MG DAILY
     Route: 048
  7. OPALMON [Concomitant]
     Dosage: 15 MICROG DAILY
     Route: 048
  8. LIPITOR [Concomitant]
     Dosage: 10 MG DAILY
     Route: 048
  9. MICARDIS [Concomitant]
     Dosage: 40 MG DAILY
     Route: 048
  10. CALBLOCK [Concomitant]
     Dosage: 32 MG DAILY
     Route: 048
  11. RISEDRONATE SODIUM [Concomitant]
     Dosage: 2.5 MG DAILY
     Route: 048

REACTIONS (1)
  - PNEUMONIA [None]
